FAERS Safety Report 8321559-8 (Version None)
Quarter: 2012Q2

REPORT INFORMATION
  Report Type: 
  Country: None (occurrence: None)
  Receive Date: 20120430
  Receipt Date: 20120424
  Transmission Date: 20120825
  Serious: Yes (Other)
  Sender: FDA-Public Use
  Company Number: US-PFIZER INC-2012102020

PATIENT
  Sex: Male

DRUGS (1)
  1. BENEFIX [Suspect]
     Indication: FACTOR IX DEFICIENCY
     Dosage: UNK
     Route: 042

REACTIONS (12)
  - CONTUSION [None]
  - CLAVICLE FRACTURE [None]
  - EYE ALLERGY [None]
  - EYE PAIN [None]
  - CEREBRAL CYST [None]
  - SUICIDE ATTEMPT [None]
  - HEADACHE [None]
  - SINUSITIS [None]
  - SELF INJURIOUS BEHAVIOUR [None]
  - DIZZINESS [None]
  - FALL [None]
  - GROIN PAIN [None]
